FAERS Safety Report 5779038-8 (Version None)
Quarter: 2008Q2

REPORT INFORMATION
  Report Type: 
  Country: None (occurrence: None)
  Receive Date: 20080617
  Receipt Date: 20080603
  Transmission Date: 20081010
  Serious: Yes (Life-Threatening, Hospitalization)
  Sender: FDA-Public Use
  Company Number: FABR-1000202

PATIENT
  Age: 62 Year
  Sex: Male

DRUGS (19)
  1. FABRAZYME [Suspect]
     Indication: FABRY'S DISEASE
     Dosage: 1 MG/KG, Q2W, INTRAVENOUS
     Route: 042
     Dates: start: 20050525
  2. BENADRYL [Concomitant]
  3. ACETAMINOPHEN [Concomitant]
  4. IBUPROFEN [Concomitant]
  5. JANUVIA (SITAGLIPTIN PHOSPHATE) [Concomitant]
  6. SIMVASTATIN [Concomitant]
  7. BACLOFEN [Concomitant]
  8. WELLBUTRIN SR [Concomitant]
  9. GLUCOTROL XL [Concomitant]
  10. ATACAND [Concomitant]
  11. TRICOR [Concomitant]
  12. TRIMETHOPRIM [Concomitant]
  13. LASIX [Concomitant]
  14. GLUCOSAMINE SULFATE (GLUCOSAMINE SULFATE) [Concomitant]
  15. ASPIRIN [Concomitant]
  16. MULTIVITAMIN [Concomitant]
  17. COPAXONE [Concomitant]
  18. XYLOCAINE JELLY 2% EX GEL [Concomitant]
  19. ELIDEL 1% EX CREAM [Concomitant]

REACTIONS (14)
  - ANAPHYLACTIC REACTION [None]
  - BLOOD PRESSURE SYSTOLIC DECREASED [None]
  - BRADYCARDIA [None]
  - BRONCHOSPASM [None]
  - CARDIO-RESPIRATORY ARREST [None]
  - DEPRESSED LEVEL OF CONSCIOUSNESS [None]
  - DYSARTHRIA [None]
  - FATIGUE [None]
  - FLUSHING [None]
  - LETHARGY [None]
  - MALAISE [None]
  - MUSCLE SPASTICITY [None]
  - OXYGEN SATURATION DECREASED [None]
  - SKIN DISCOLOURATION [None]
